FAERS Safety Report 23811951 (Version 1)
Quarter: 2024Q2

REPORT INFORMATION
  Report Type: Spontaneous
  Country: US (occurrence: US)
  Receive Date: 20240503
  Receipt Date: 20240503
  Transmission Date: 20240716
  Serious: No
  Sender: FDA-Public Use
  Company Number: US-UCBSA-2023028560

PATIENT
  Sex: Female
  Weight: 82.54 kg

DRUGS (3)
  1. CIMZIA [Suspect]
     Active Substance: CERTOLIZUMAB PEGOL
     Indication: Rheumatoid arthritis
     Dosage: 400 MILLIGRAM, EV 4 WEEKS (DIVIDED INTO 2 SIDES IN THE ABDOMEN OR THIGH AS DIRECTED)
     Route: 058
     Dates: start: 202302
  2. CIMZIA [Suspect]
     Active Substance: CERTOLIZUMAB PEGOL
     Indication: Rheumatoid arthritis
     Dosage: 400 MILLIGRAM, EV 4 WEEKS (DIVIDED INTO 2 SIDES IN THE ABDOMEN OR THIGH AS DIRECTED)
     Route: 058
     Dates: start: 202304, end: 2023
  3. CIMZIA [Suspect]
     Active Substance: CERTOLIZUMAB PEGOL
     Dosage: 400 MILLIGRAM, EV 4 WEEKS (DIVIDED INTO 2 SIDES IN THE ABDOMEN OR THIGH AS DIRECTED)
     Route: 058
     Dates: start: 2023

REACTIONS (4)
  - Infection [Unknown]
  - Feeling abnormal [Unknown]
  - Arthralgia [Unknown]
  - Rash [Unknown]

NARRATIVE: CASE EVENT DATE: 20230101
